FAERS Safety Report 7132440-4 (Version None)
Quarter: 2010Q4

REPORT INFORMATION
  Report Type: 
  Country: None (occurrence: None)
  Receive Date: 20101202
  Receipt Date: 20101118
  Transmission Date: 20110411
  Serious: Yes (Other)
  Sender: FDA-Public Use
  Company Number: US-ROCHE-722692

PATIENT
  Sex: Female
  Weight: 50.8 kg

DRUGS (1)
  1. ACCUTANE [Suspect]
     Indication: ACNE
     Route: 065
     Dates: start: 19960801, end: 19971201

REACTIONS (5)
  - ANAL FISSURE [None]
  - COLITIS ULCERATIVE [None]
  - DEPRESSION [None]
  - GASTROINTESTINAL INJURY [None]
  - SMALL INTESTINAL OBSTRUCTION [None]
